FAERS Safety Report 18969178 (Version 1)
Quarter: 2021Q1

REPORT INFORMATION
  Report Type: Spontaneous
  Country: US (occurrence: US)
  Receive Date: 20210304
  Receipt Date: 20210304
  Transmission Date: 20210420
  Serious: No
  Sender: FDA-Public Use
  Company Number: US-GILEAD-2021-0518164

PATIENT
  Sex: Female

DRUGS (2)
  1. EPCLUSA [Suspect]
     Active Substance: SOFOSBUVIR\VELPATASVIR
     Indication: HEPATITIS C
     Route: 065
  2. TAMOXIFEN [Interacting]
     Active Substance: TAMOXIFEN
     Indication: BREAST CANCER
     Route: 065

REACTIONS (2)
  - Drug interaction [Recovered/Resolved]
  - Nausea [Recovered/Resolved]
